FAERS Safety Report 8151345-3 (Version None)
Quarter: 2012Q1

REPORT INFORMATION
  Report Type: 
  Country: None (occurrence: None)
  Receive Date: 20120220
  Receipt Date: 20120209
  Transmission Date: 20120608
  Serious: Yes (Other)
  Sender: FDA-Public Use
  Company Number: US-ELI_LILLY_AND_COMPANY-US201202003356

PATIENT
  Sex: Male

DRUGS (4)
  1. ANTIHYPERTENSIVES [Concomitant]
     Dosage: UNK
  2. HUMALOG [Suspect]
     Dosage: 5 U, OTHER
     Dates: start: 20090101
  3. LANTUS [Concomitant]
     Dosage: 20 U, UNKNOWN
  4. HUMALOG [Suspect]
     Indication: TYPE 2 DIABETES MELLITUS
     Dosage: 5 U, OTHER
     Dates: start: 20090101

REACTIONS (10)
  - SKIN CANCER [None]
  - VISION BLURRED [None]
  - BASAL CELL CARCINOMA [None]
  - EYELID TUMOUR [None]
  - VISUAL IMPAIRMENT [None]
  - BLOOD GLUCOSE INCREASED [None]
  - SQUAMOUS CELL CARCINOMA [None]
  - SKIN EXFOLIATION [None]
  - INCORRECT DOSE ADMINISTERED [None]
  - CATARACT [None]
